FAERS Safety Report 24252703 (Version 1)
Quarter: 2024Q3

REPORT INFORMATION
  Report Type: Spontaneous
  Country: US (occurrence: US)
  Receive Date: 20240827
  Receipt Date: 20240827
  Transmission Date: 20241017
  Serious: No
  Sender: AUROBINDO
  Company Number: US-AUROBINDO-AUR-APL-2024-023527

PATIENT
  Age: 14 Year
  Sex: Male
  Weight: 65.7 kg

DRUGS (2)
  1. AZITHROMYCIN [Suspect]
     Active Substance: AZITHROMYCIN
     Indication: Cough
     Dosage: 2 DOSAGE FORM, DAILY 02 PILLS A DAY AS INSTRUCTED )
     Route: 048
     Dates: start: 20240505
  2. AZITHROMYCIN [Suspect]
     Active Substance: AZITHROMYCIN
     Indication: Nasopharyngitis
     Dosage: 1 DOSAGE FORM, DAILY
     Route: 048
     Dates: start: 20240506

REACTIONS (2)
  - Pruritus [Recovered/Resolved]
  - Urticaria [Recovered/Resolved]

NARRATIVE: CASE EVENT DATE: 20240505
